FAERS Safety Report 10452099 (Version 3)
Quarter: 2014Q4

REPORT INFORMATION
  Report Type: Spontaneous
  Country: AU (occurrence: AU)
  Receive Date: 20140915
  Receipt Date: 20141028
  Transmission Date: 20150528
  Serious: Yes (Hospitalization, Other)
  Sender: FDA-Public Use
  Company Number: AU-AMGEN-AUSSP2014066989

PATIENT
  Age: 50 Year
  Sex: Female
  Weight: 74.3 kg

DRUGS (5)
  1. NEULASTA [Suspect]
     Active Substance: PEGFILGRASTIM
     Indication: BREAST CANCER
  2. NEULASTA [Suspect]
     Active Substance: PEGFILGRASTIM
     Indication: WHITE BLOOD CELL COUNT ABNORMAL
     Dosage: 6 MG, 3 WEEKLY
     Route: 058
     Dates: start: 20140719
  3. CYCLOPHOSPHAMIDE. [Concomitant]
     Active Substance: CYCLOPHOSPHAMIDE
     Indication: BREAST CANCER
     Dosage: 910 MG, Q3WK
     Route: 042
     Dates: start: 20140627, end: 20140808
  4. 5 FU [Concomitant]
     Active Substance: FLUOROURACIL
     Indication: BREAST CANCER
     Dosage: 910 MG, Q3WK
     Route: 042
     Dates: start: 20140627, end: 20140808
  5. EPIRUBICIN [Concomitant]
     Active Substance: EPIRUBICIN
     Indication: BREAST CANCER
     Dosage: 180 MG, Q3WK
     Route: 042
     Dates: start: 20140627, end: 20140808

REACTIONS (9)
  - Hypophagia [Recovered/Resolved]
  - Nausea [Unknown]
  - Vomiting [Recovered/Resolved]
  - Loss of consciousness [Recovered/Resolved]
  - Dizziness [Recovered/Resolved]
  - Neutrophil count abnormal [Recovered/Resolved]
  - Stress [Unknown]
  - Fall [Recovered/Resolved]
  - Syncope [Unknown]

NARRATIVE: CASE EVENT DATE: 20140809
